FAERS Safety Report 10058438 (Version 2)
Quarter: 2017Q1

REPORT INFORMATION
  Report Type: Report from Study
  Country: US (occurrence: US)
  Receive Date: 20140404
  Receipt Date: 20170201
  Transmission Date: 20170428
  Serious: Yes (Other)
  Sender: FDA-Public Use
  Company Number: US-SA-2014SA041381

PATIENT
  Age: 43 Year
  Sex: Female

DRUGS (1)
  1. CEREZYME [Suspect]
     Active Substance: IMIGLUCERASE
     Indication: GAUCHER^S DISEASE
     Dosage: DOSE: 132.00 (UNITS NOT PROVIDED)?FREQUENCY: Q4
     Route: 042
     Dates: start: 20001019

REACTIONS (5)
  - Fatigue [Unknown]
  - Breast calcifications [Unknown]
  - Palpitations [Unknown]
  - Arrhythmia [Unknown]
  - Asthenia [Unknown]

NARRATIVE: CASE EVENT DATE: 20170123
